FAERS Safety Report 6545650-1 (Version None)
Quarter: 2010Q1

REPORT INFORMATION
  Report Type: 
  Country: None (occurrence: None)
  Receive Date: 20100119
  Receipt Date: 20100104
  Transmission Date: 20100710
  Serious: Yes (Hospitalization, Other)
  Sender: FDA-Public Use
  Company Number: 2009AC000214

PATIENT
  Age: 64 Year
  Sex: Male

DRUGS (29)
  1. DIGOXIN [Suspect]
     Dosage: 0.25 MG;QD;PO
     Route: 048
     Dates: end: 20080808
  2. TOPROL-XL [Concomitant]
  3. LASIX [Concomitant]
  4. LESCOL [Concomitant]
  5. HYDRALAZINE [Concomitant]
  6. TRICOR [Concomitant]
  7. WARFARIN SODIUM [Concomitant]
  8. NORVASC [Concomitant]
  9. IMDUR [Concomitant]
  10. LANTUS [Concomitant]
  11. NOVOLOG [Concomitant]
  12. LOVASTATIN [Concomitant]
  13. METFORMIN HCL [Concomitant]
  14. AMLODIPINE [Concomitant]
  15. FENOFIBRATE [Concomitant]
  16. INSULIN [Concomitant]
  17. GLARGINE [Concomitant]
  18. ISOSORBIDE MONONITRATE [Concomitant]
  19. METOPROLOL [Concomitant]
  20. PRAVASTATIN [Concomitant]
  21. TOPROL-XL [Concomitant]
  22. FUROSEMIDE [Concomitant]
  23. LOTREL [Concomitant]
  24. NOVOLIN [Concomitant]
  25. RENAGEL [Concomitant]
  26. POTASSIUM [Concomitant]
  27. ZOCOR [Concomitant]
  28. DIURETICS [Concomitant]
  29. GLIPIZIDE [Concomitant]

REACTIONS (26)
  - ANAEMIA [None]
  - ANGINA PECTORIS [None]
  - ANHEDONIA [None]
  - ANXIETY [None]
  - ASTHENIA [None]
  - BRAIN NATRIURETIC PEPTIDE INCREASED [None]
  - CARDIAC FAILURE CONGESTIVE [None]
  - CONFUSIONAL STATE [None]
  - DIARRHOEA [None]
  - FALL [None]
  - FATIGUE [None]
  - FLUID OVERLOAD [None]
  - GANGRENE [None]
  - HYPOGLYCAEMIA [None]
  - HYPOTENSION [None]
  - INJURY [None]
  - INTERNATIONAL NORMALISED RATIO INCREASED [None]
  - MENTAL STATUS CHANGES [None]
  - OESOPHAGEAL MASS [None]
  - PAIN [None]
  - PHOTOPSIA [None]
  - PLEURAL EFFUSION [None]
  - PNEUMONIA [None]
  - THERAPEUTIC AGENT TOXICITY [None]
  - VISION BLURRED [None]
  - VISUAL ACUITY REDUCED [None]
